FAERS Safety Report 4317190-1 (Version None)
Quarter: 2004Q1

REPORT INFORMATION
  Report Type: 
  Country: None (occurrence: None)
  Receive Date: 20040312
  Receipt Date: 20040224
  Transmission Date: 20041129
  Serious: Yes (Hospitalization)
  Sender: FDA-Public Use
  Company Number: 193193

PATIENT
  Age: 55 Year
  Sex: Male
  Weight: 54.4316 kg

DRUGS (9)
  1. AVONEX [Suspect]
     Indication: MULTIPLE SCLEROSIS
     Dosage: 30 MCG QW IM
     Route: 030
     Dates: start: 20020101, end: 20031201
  2. AVONEX [Suspect]
     Indication: MULTIPLE SCLEROSIS
     Dosage: 30 MCG QW IM
     Route: 030
     Dates: start: 20031201
  3. LOTENSIN [Concomitant]
  4. TENORMIN [Concomitant]
  5. CLONIDIPINE [Concomitant]
  6. SALSALATE [Concomitant]
  7. BACLOFEN [Concomitant]
  8. HYDROCODONE [Concomitant]
  9. XANAX [Concomitant]

REACTIONS (3)
  - DIFFICULTY IN WALKING [None]
  - HYPOKALAEMIA [None]
  - SEPSIS [None]
